FAERS Safety Report 13136748 (Version 1)
Quarter: 2017Q1

REPORT INFORMATION
  Report Type: Spontaneous
  Country: HR (occurrence: HR)
  Receive Date: 20170123
  Receipt Date: 20170123
  Transmission Date: 20170428
  Serious: Yes (Other)
  Sender: FDA-Public Use
  Company Number: HR-SUN PHARMACEUTICAL INDUSTRIES LTD-2015R1-102754

PATIENT
  Sex: Male

DRUGS (1)
  1. ALLOPURINOL. [Suspect]
     Active Substance: ALLOPURINOL
     Indication: GOUT
     Dosage: 600 MG, DAILY
     Route: 065

REACTIONS (3)
  - Peripheral sensorimotor neuropathy [Recovering/Resolving]
  - Microcytic anaemia [Recovered/Resolved]
  - Copper deficiency [Recovered/Resolved]
